FAERS Safety Report 5975083-8 (Version None)
Quarter: 2008Q4

REPORT INFORMATION
  Report Type: 
  Country: None (occurrence: None)
  Receive Date: 20081202
  Receipt Date: 20081121
  Transmission Date: 20090506
  Serious: Yes (Hospitalization)
  Sender: FDA-Public Use
  Company Number: IT-BRISTOL-MYERS SQUIBB COMPANY-14424956

PATIENT

DRUGS (2)
  1. ERBITUX [Suspect]
     Indication: RECTAL CANCER
     Route: 042
     Dates: start: 20081017, end: 20081031
  2. CAMPTOSAR [Suspect]
     Indication: RECTAL CANCER
     Dates: start: 20081017, end: 20081031

REACTIONS (2)
  - NEUTROPENIA [None]
  - PYREXIA [None]
